FAERS Safety Report 9610373 (Version 2)
Quarter: 2013Q4

REPORT INFORMATION
  Report Type: Spontaneous
  Country: SE (occurrence: SE)
  Receive Date: 20131009
  Receipt Date: 20131009
  Transmission Date: 20140711
  Serious: Yes (Other)
  Sender: FDA-Public Use
  Company Number: SE-PFIZER INC-2013250377

PATIENT
  Age: 47 Year
  Sex: Female
  Weight: 97 kg

DRUGS (1)
  1. CHAMPIX [Suspect]
     Indication: SMOKING CESSATION THERAPY
     Dosage: DOSE ESCALATION FROM 0.5MG TO 1MG AS PRESCRIBED
     Dates: start: 20110910, end: 20111101

REACTIONS (3)
  - Dyspnoea [Recovered/Resolved]
  - Choking sensation [Recovered/Resolved]
  - Nasopharyngitis [Unknown]
